FAERS Safety Report 9159338 (Version 1)
Quarter: 2013Q1

REPORT INFORMATION
  Report Type: Spontaneous
  Country: US (occurrence: None)
  Receive Date: 20130312
  Receipt Date: 20130312
  Transmission Date: 20140127
  Serious: No
  Sender: FDA-Public Use
  Company Number: None

PATIENT
  Sex: Male

DRUGS (1)
  1. OMINITTROPE [Suspect]
     Dates: start: 20111115

REACTIONS (3)
  - Eye movement disorder [None]
  - Bruxism [None]
  - Autism [None]
